FAERS Safety Report 16821345 (Version 1)
Quarter: 2019Q3

REPORT INFORMATION
  Report Type: Spontaneous
  Country: DE (occurrence: DE)
  Receive Date: 20190918
  Receipt Date: 20190918
  Transmission Date: 20191005
  Serious: Yes (Life-Threatening, Other)
  Sender: FDA-Public Use
  Company Number: PHHY2019DE214350

PATIENT
  Age: 68 Year

DRUGS (2)
  1. TRAMETINIB [Suspect]
     Active Substance: TRAMETINIB
     Indication: METASTATIC MALIGNANT MELANOMA
     Dosage: 2 MG, QD
     Route: 065
  2. DABRAFENIB [Suspect]
     Active Substance: DABRAFENIB
     Indication: METASTATIC MALIGNANT MELANOMA
     Dosage: 150 MG, BID
     Route: 065

REACTIONS (12)
  - Splenomegaly [Unknown]
  - Interleukin-2 receptor increased [Unknown]
  - Bacterial infection [Unknown]
  - Haemophagocytic lymphohistiocytosis [Recovered/Resolved]
  - Hypertriglyceridaemia [Unknown]
  - Hypofibrinogenaemia [Unknown]
  - C-reactive protein increased [Unknown]
  - Pancytopenia [Unknown]
  - Cytokine release syndrome [Unknown]
  - Procalcitonin increased [Unknown]
  - Serum ferritin increased [Unknown]
  - Pyrexia [Unknown]
